FAERS Safety Report 10006146 (Version 1)
Quarter: 2014Q1

REPORT INFORMATION
  Report Type: Report from Study
  Country: US (occurrence: US)
  Receive Date: 20140313
  Receipt Date: 20140313
  Transmission Date: 20141002
  Serious: Yes (Death)
  Sender: FDA-Public Use
  Company Number: US-ASTELLAS-2014US002451

PATIENT
  Age: 60 Year
  Sex: Male

DRUGS (8)
  1. ERLOTINIB TABLET [Suspect]
     Indication: HEPATIC CANCER
     Dosage: 150 MG, UID/QD
     Route: 048
     Dates: start: 20110719
  2. GLEEVEC [Suspect]
     Indication: PRODUCT USED FOR UNKNOWN INDICATION
     Dosage: 400 MG, UNKNOWN/D
     Route: 048
  3. COUMADIN                           /00014802/ [Concomitant]
     Indication: PRODUCT USED FOR UNKNOWN INDICATION
     Dosage: 1 MG, UNKNOWN/D
     Route: 065
  4. NORVASC [Concomitant]
     Indication: PRODUCT USED FOR UNKNOWN INDICATION
     Dosage: 2.5 MG, UNKNOWN/D
     Route: 065
  5. MAXIDEX                            /00016001/ [Concomitant]
     Indication: PRODUCT USED FOR UNKNOWN INDICATION
     Dosage: UNK
     Route: 065
  6. NEXAVAR [Concomitant]
     Indication: PRODUCT USED FOR UNKNOWN INDICATION
     Dosage: 200 MG, UNKNOWN/D
     Route: 065
  7. XELODA [Concomitant]
     Indication: PRODUCT USED FOR UNKNOWN INDICATION
     Dosage: 500 MG, UNKNOWN/D
     Route: 065
  8. POTASSIUM [Concomitant]
     Indication: PRODUCT USED FOR UNKNOWN INDICATION
     Dosage: UNK
     Route: 065

REACTIONS (2)
  - Off label use [Unknown]
  - Death [Fatal]
